FAERS Safety Report 20802641 (Version 1)
Quarter: 2022Q2

REPORT INFORMATION
  Report Type: Spontaneous
  Country: US (occurrence: None)
  Receive Date: 20220509
  Receipt Date: 20220509
  Transmission Date: 20220721
  Serious: No
  Sender: FDA-Public Use
  Company Number: None

PATIENT
  Sex: Male

DRUGS (1)
  1. STELARA [Suspect]
     Active Substance: USTEKINUMAB
     Indication: Crohn^s disease
     Dosage: 90MG EVERY 8 WEEKS SUB-Q?
     Route: 058
     Dates: start: 20211117, end: 202204

REACTIONS (7)
  - Crohn^s disease [None]
  - Disease progression [None]
  - Post procedural discomfort [None]
  - Procedural pain [None]
  - Injury associated with device [None]
  - Iatrogenic injury [None]
  - Skin laceration [None]
